FAERS Safety Report 7842874 (Version 5)
Quarter: 2012Q4

REPORT INFORMATION
  Report Type: 
  Country: US (occurrence: US)
  Receive Date: 20110307
  Receipt Date: 20120828
  Transmission Date: 20130627
  Serious: Yes (Other)
  Sender: FDA-Public Use
  Company Number: US-BAYER-2011-020095

PATIENT
  Age: 39 Year
  Sex: Female
  Weight: 81.63 kg

DRUGS (3)
  1. YAZ [Suspect]
     Indication: ACNE
     Dosage: UNK
     Route: 048
     Dates: start: 200908
  2. BUPROPION [Concomitant]
     Indication: DEPRESSION
     Dosage: UNK
     Dates: start: 2007
  3. INHALER [Concomitant]
     Indication: ASTHMA
     Dosage: UNK

REACTIONS (2)
  - Cholecystitis chronic [None]
  - Gallbladder non-functioning [None]
